FAERS Safety Report 25497247 (Version 2)
Quarter: 2025Q3

REPORT INFORMATION
  Report Type: Spontaneous
  Country: US (occurrence: US)
  Receive Date: 20250701
  Receipt Date: 20250818
  Transmission Date: 20251021
  Serious: Yes (Hospitalization)
  Sender: CATALYST PHARMA
  Company Number: US-CATALYST PHARMACEUTICALS-US-CATA-25-00900

PATIENT
  Age: 5 Year
  Sex: Male
  Weight: 18.6 kg

DRUGS (2)
  1. AGAMREE [Suspect]
     Active Substance: VAMOROLONE
     Indication: Duchenne muscular dystrophy
     Dosage: 2.3 ML ONCE A DAY
     Route: 048
     Dates: start: 20240824, end: 202506
  2. AGAMREE [Suspect]
     Active Substance: VAMOROLONE
     Route: 048
     Dates: start: 2025

REACTIONS (1)
  - Supraventricular tachycardia [Not Recovered/Not Resolved]

NARRATIVE: CASE EVENT DATE: 20250622
